FAERS Safety Report 4957590-X (Version None)
Quarter: 2006Q1

REPORT INFORMATION
  Report Type: 
  Country: None (occurrence: None)
  Receive Date: 20060330
  Receipt Date: 20060322
  Transmission Date: 20060701
  Serious: Yes (Other)
  Sender: FDA-Public Use
  Company Number: FI-JNJFOC-20050502395

PATIENT
  Sex: Female

DRUGS (5)
  1. REMICADE [Suspect]
     Indication: RHEUMATOID ARTHRITIS
     Dosage: 19 INFUSIONS ADMINISTERED
     Route: 042
  2. METHOTREXATE [Concomitant]
  3. AZATHIOPINE [Concomitant]
  4. LEFLUNOMIDE [Concomitant]
  5. METHYLPREDNISOLONE [Concomitant]

REACTIONS (1)
  - TUBERCULOSIS [None]
